FAERS Safety Report 5038462-1 (Version None)
Quarter: 2006Q2

REPORT INFORMATION
  Report Type: 
  Country: None (occurrence: None)
  Receive Date: 20060628
  Receipt Date: 20060628
  Transmission Date: 20061013
  Serious: No
  Sender: FDA-Public Use
  Company Number: None

PATIENT
  Age: 51 Year
  Sex: Male

DRUGS (1)
  1. LEVAQUIN [Suspect]
     Indication: BLADDER NEOPLASM
     Dosage: 500 MG ONCE IV PIGGYBACK
     Route: 042
     Dates: start: 20060623, end: 20060624

REACTIONS (5)
  - DIZZINESS [None]
  - DYSPNOEA [None]
  - FEELING HOT [None]
  - INFUSION RELATED REACTION [None]
  - NAUSEA [None]
